FAERS Safety Report 25659324 (Version 1)
Quarter: 2025Q3

REPORT INFORMATION
  Report Type: Spontaneous
  Country: US (occurrence: None)
  Receive Date: 20250807
  Receipt Date: 20250807
  Transmission Date: 20251021
  Serious: Yes (Hospitalization)
  Sender: FDA-CTU
  Company Number: None

PATIENT
  Age: 32 Year
  Sex: Female

DRUGS (10)
  1. HUMIRA [Suspect]
     Active Substance: ADALIMUMAB
     Indication: Colitis ulcerative
     Dosage: FREQUENCY : EVERY OTHER WEEK;?
     Route: 058
     Dates: start: 20210311
  2. PRENATAL MULTI + DHA CAPSULES [Concomitant]
  3. MOUNJARO [Concomitant]
     Active Substance: TIRZEPATIDE
  4. COLACE [Concomitant]
     Active Substance: DOCUSATE SODIUM
  5. HYOSCYAMINE [Concomitant]
     Active Substance: HYOSCYAMINE
  6. LORATADINE [Concomitant]
     Active Substance: LORATADINE
  7. METFORMIN [Concomitant]
     Active Substance: METFORMIN HYDROCHLORIDE
  8. OMEPRAZOLE [Concomitant]
     Active Substance: OMEPRAZOLE
  9. ONDANSETRON [Concomitant]
     Active Substance: ONDANSETRON
  10. ONE-A-DAY VITACRAVES [Concomitant]

REACTIONS (2)
  - Pre-eclampsia [None]
  - Exposure during pregnancy [None]

NARRATIVE: CASE EVENT DATE: 20250807
